FAERS Safety Report 25470164 (Version 2)
Quarter: 2025Q4

REPORT INFORMATION
  Report Type: Spontaneous
  Country: EU (occurrence: EU)
  Receive Date: 20250623
  Receipt Date: 20251214
  Transmission Date: 20260118
  Serious: Yes (Hospitalization, Other)
  Sender: ABBVIE
  Company Number: None

PATIENT
  Age: 15 Year
  Sex: Male
  Weight: 82 kg

DRUGS (6)
  1. ADALIMUMAB [Suspect]
     Active Substance: ADALIMUMAB
     Indication: Colitis ulcerative
     Dosage: MAMMIFERE/HAMSTER/CHO
     Route: 058
     Dates: start: 202402, end: 20240626
  2. ASCORBIC ACID\FERROUS SULFATE [Suspect]
     Active Substance: ASCORBIC ACID\FERROUS SULFATE
     Indication: Colitis ulcerative
     Dosage: 50MG
     Route: 048
     Dates: start: 20240626
  3. FOLIC ACID [Suspect]
     Active Substance: FOLIC ACID
     Indication: Colitis ulcerative
     Route: 048
     Dates: start: 20240626
  4. METHOTREXATE [Suspect]
     Active Substance: METHOTREXATE
     Indication: Colitis ulcerative
     Route: 048
     Dates: start: 20240626
  5. METHOTREXATE [Suspect]
     Active Substance: METHOTREXATE
     Indication: Colitis ulcerative
     Route: 048
  6. INFLIXIMAB [Suspect]
     Active Substance: INFLIXIMAB
     Indication: Colitis ulcerative
     Dosage: MAMMIFERE/HAMSTER/CELLULES CHO
     Route: 042
     Dates: start: 20240626

REACTIONS (4)
  - Psychotic disorder [Recovering/Resolving]
  - Suicide attempt [Recovered/Resolved]
  - Anxiety [Recovering/Resolving]
  - Thymus disorder [Recovering/Resolving]

NARRATIVE: CASE EVENT DATE: 20240701
